FAERS Safety Report 4714344-7 (Version None)
Quarter: 2005Q3

REPORT INFORMATION
  Report Type: 
  Country: None (occurrence: None)
  Receive Date: 20050714
  Receipt Date: 20050302
  Transmission Date: 20060218
  Serious: Yes (Hospitalization)
  Sender: FDA-Public Use
  Company Number: BE-ROCHE-397139

PATIENT
  Age: 49 Year
  Sex: Female
  Weight: 47 kg

DRUGS (5)
  1. FUZEON [Suspect]
     Route: 058
     Dates: start: 20041025, end: 20050615
  2. DIDANOSINE [Concomitant]
  3. LAMIVUDINE [Concomitant]
  4. RITONAVIR [Concomitant]
  5. TIPRANAVIR [Concomitant]

REACTIONS (4)
  - BREAST ABSCESS [None]
  - INJECTION SITE REACTION [None]
  - OSTEOMYELITIS [None]
  - SEROSITIS [None]
